FAERS Safety Report 8594807-7 (Version None)
Quarter: 2012Q3

REPORT INFORMATION
  Report Type: 
  Country: None (occurrence: None)
  Receive Date: 20120815
  Receipt Date: 20120803
  Transmission Date: 20120928
  Serious: Yes (Other)
  Sender: FDA-Public Use
  Company Number: US-BAYER-2012-080873

PATIENT
  Age: 21 Year
  Sex: Female

DRUGS (2)
  1. BEYAZ [Suspect]
     Dosage: UNK
     Dates: start: 20120318
  2. YAZ [Suspect]
     Dosage: UNK
     Dates: start: 20050101, end: 20100101

REACTIONS (7)
  - STILLBIRTH [None]
  - INJURY [None]
  - PAIN [None]
  - MYOCARDIAL INFARCTION [None]
  - ANXIETY [None]
  - EMOTIONAL DISTRESS [None]
  - GENERAL PHYSICAL HEALTH DETERIORATION [None]
